FAERS Safety Report 5976226-2 (Version None)
Quarter: 2008Q4

REPORT INFORMATION
  Report Type: 
  Country: None (occurrence: None)
  Receive Date: 20081202
  Receipt Date: 20081125
  Transmission Date: 20090506
  Serious: Yes (Disabling)
  Sender: FDA-Public Use
  Company Number: JP-ASTRAZENECA-2008AP07924

PATIENT
  Age: 76 Year
  Sex: Female

DRUGS (3)
  1. NOLVADEX [Suspect]
     Indication: BREAST CANCER
     Route: 048
     Dates: start: 20060713, end: 20080907
  2. LULICON:SOLUTION [Concomitant]
     Indication: TINEA INFECTION
     Dosage: ONCE A DAY, APPLY ADEQUATE AMOUNT.
     Route: 003
     Dates: start: 20060724
  3. GARASONE [Concomitant]
     Indication: RASH
     Dosage: SEVERAL TIMES A DAY, APPLY ADEQUATE AMOUNT.
     Route: 003
     Dates: start: 20071210

REACTIONS (1)
  - CEREBRAL INFARCTION [None]
